FAERS Safety Report 6129379-X (Version None)
Quarter: 2009Q1

REPORT INFORMATION
  Report Type: 
  Country: None (occurrence: None)
  Receive Date: 20090323
  Receipt Date: 20090323
  Transmission Date: 20090719
  Serious: Yes (Other)
  Sender: FDA-Public Use
  Company Number: None

PATIENT
  Age: 79 Year
  Sex: Female
  Weight: 55.3388 kg

DRUGS (2)
  1. ZOLPIDEM [Suspect]
     Indication: INSOMNIA
     Dosage: ONE PILL AS NEEDED PO
     Route: 048
     Dates: start: 20090309, end: 20090313
  2. AMBIEN [Concomitant]

REACTIONS (1)
  - BALANCE DISORDER [None]
